FAERS Safety Report 17544793 (Version 1)
Quarter: 2020Q1

REPORT INFORMATION
  Report Type: Spontaneous
  Country: US (occurrence: US)
  Receive Date: 20200316
  Receipt Date: 20200316
  Transmission Date: 20200409
  Serious: Yes (Other)
  Sender: FDA-Public Use
  Company Number: US-ACCORD-175371

PATIENT
  Age: 62 Year
  Sex: Male

DRUGS (1)
  1. CISPLATIN. [Suspect]
     Active Substance: CISPLATIN
     Indication: CARCINOMA EX-PLEOMORPHIC ADENOMA

REACTIONS (3)
  - Off label use [Unknown]
  - Abscess [Unknown]
  - Meningitis bacterial [Unknown]
